FAERS Safety Report 9132045 (Version 2)
Quarter: 2013Q3

REPORT INFORMATION
  Report Type: Spontaneous
  Country: FR (occurrence: FR)
  Receive Date: 20130301
  Receipt Date: 20130809
  Transmission Date: 20140515
  Serious: Yes (Hospitalization, Other)
  Sender: FDA-Public Use
  Company Number: FR-JNJFOC-20130213492

PATIENT
  Age: 63 Year
  Sex: Female

DRUGS (6)
  1. XARELTO [Suspect]
     Indication: CEREBROVASCULAR ACCIDENT PROPHYLAXIS
     Route: 048
     Dates: start: 20121215, end: 20130209
  2. XARELTO [Suspect]
     Indication: ATRIAL FIBRILLATION
     Route: 048
     Dates: start: 20121215, end: 20130209
  3. METFORMINE [Concomitant]
     Route: 065
  4. EUPRESSYL [Concomitant]
     Route: 065
  5. TARKA [Concomitant]
     Route: 065
  6. AMIODARONE [Concomitant]
     Route: 065

REACTIONS (3)
  - Thrombocytopenia [Recovering/Resolving]
  - Haematoma [Unknown]
  - Conjunctival haemorrhage [Unknown]
